FAERS Safety Report 9143445 (Version 1)
Quarter: 2013Q1

REPORT INFORMATION
  Report Type: Spontaneous
  Country: US (occurrence: US)
  Receive Date: 20130306
  Receipt Date: 20130306
  Transmission Date: 20140127
  Serious: No
  Sender: FDA-Public Use
  Company Number: US-ENDO PHARMACEUTICALS INC.-OPER20110311

PATIENT
  Sex: Female
  Weight: 74.91 kg

DRUGS (1)
  1. OPANA ER 20MG [Suspect]
     Indication: PAIN
     Route: 048
     Dates: start: 20111118, end: 20111119

REACTIONS (4)
  - Sneezing [Unknown]
  - Rhinorrhoea [Unknown]
  - Diarrhoea [Unknown]
  - Drug ineffective [Unknown]
